FAERS Safety Report 24079633 (Version 1)
Quarter: 2024Q3

REPORT INFORMATION
  Report Type: Spontaneous
  Country: US (occurrence: US)
  Receive Date: 20240711
  Receipt Date: 20240711
  Transmission Date: 20241016
  Serious: Yes (Death)
  Sender: AMGEN
  Company Number: US-AMGEN-USASP2024137413

PATIENT

DRUGS (11)
  1. NEULASTA [Suspect]
     Active Substance: PEGFILGRASTIM
     Indication: Prophylaxis
     Dosage: ON DAY 8 AFTER CYCLE 1
     Route: 065
  2. FILGRASTIM [Suspect]
     Active Substance: FILGRASTIM
     Indication: Prophylaxis
     Dosage: UNK, COULD BE ADMINISTERED PRIOR TO DAY 8 AT THE PHYSICIAN^S DISCRETION
     Route: 065
  3. PEGFILGRASTIM [Suspect]
     Active Substance: PEGFILGRASTIM
     Indication: Prophylaxis
     Dosage: 6 MILLIGRAM ON DAY 9 OF EACH CYCLE
     Route: 058
  4. PACLITAXEL [Concomitant]
     Active Substance: PACLITAXEL
     Indication: Pancreatic carcinoma
     Dosage: 125 MILLIGRAM/SQ. METER, Q3WK, DAYS 1 AND 8 EVERY 21DAYS
     Route: 042
  5. GEMCITABINE [Concomitant]
     Active Substance: GEMCITABINE
     Indication: Pancreatic carcinoma
     Dosage: 1000 MILLIGRAM/SQ. METER, Q3WK, DAYS 1 AND 8 EVERY 21DAYS
     Route: 042
  6. CISPLATIN [Concomitant]
     Active Substance: CISPLATIN
     Indication: Pancreatic carcinoma
     Dosage: 25 MILLIGRAM/SQ. METER, Q3WK, DAYS 1 AND 8 EVERY 21DAYS
     Route: 042
  7. DEXAMETHASONE [Concomitant]
     Active Substance: DEXAMETHASONE
     Dosage: 12 MILLIGRAM
     Route: 042
  8. DEXAMETHASONE [Concomitant]
     Active Substance: DEXAMETHASONE
     Dosage: 4 MILLIGRAM, BID, FOR 2 DAYS AFTER CHEMOTHERAPY
     Route: 048
  9. PALONOSETRON [Concomitant]
     Active Substance: PALONOSETRON
     Dosage: 0.25 MILLIGRAM
     Route: 042
  10. FOSAPREPITANT [Concomitant]
     Active Substance: FOSAPREPITANT
     Dosage: 150 MILLIGRAM
  11. ONDANSETRON [Concomitant]
     Active Substance: ONDANSETRON
     Dosage: 8 MILLIGRAM, BID. FOR 2 DAYS AFTER CHEMOTHERAPY
     Route: 048

REACTIONS (1)
  - Cardiac arrest [Fatal]
